FAERS Safety Report 4765498-8 (Version None)
Quarter: 2005Q3

REPORT INFORMATION
  Report Type: 
  Country: None (occurrence: None)
  Receive Date: 20050912
  Receipt Date: 20050901
  Transmission Date: 20060218
  Serious: Yes (Other)
  Sender: FDA-Public Use
  Company Number: US-JNJFOC-20050900233

PATIENT
  Sex: Female
  Weight: 141.52 kg

DRUGS (16)
  1. INFLIXIMAB [Suspect]
     Indication: RHEUMATOID ARTHRITIS
     Route: 042
  2. ASPIRIN [Concomitant]
  3. GLUCOPHAGE [Concomitant]
  4. GLUCOPHAGE [Concomitant]
  5. ATENOLOL [Concomitant]
  6. AVANDIA [Concomitant]
  7. ACCUPRIL [Concomitant]
  8. IRON [Concomitant]
  9. METHOTREXATE [Concomitant]
  10. FOLIC ACID [Concomitant]
  11. ULTRACET [Concomitant]
  12. ULTRACET [Concomitant]
     Dosage: AS NEEDED
  13. LIPITOR [Concomitant]
  14. HYDROCHLOROTHIAZIDE [Concomitant]
  15. ACIPHEX [Concomitant]
  16. NABUMETONE [Concomitant]

REACTIONS (3)
  - DEMYELINATION [None]
  - LACUNAR INFARCTION [None]
  - SQUAMOUS CELL CARCINOMA [None]
